FAERS Safety Report 6214149-4 (Version None)
Quarter: 2009Q2

REPORT INFORMATION
  Report Type: 
  Country: None (occurrence: None)
  Receive Date: 20090604
  Receipt Date: 20090601
  Transmission Date: 20091009
  Serious: Yes (Hospitalization)
  Sender: FDA-Public Use
  Company Number: US-BRISTOL-MYERS SQUIBB COMPANY-14645584

PATIENT
  Age: 49 Year
  Sex: Female
  Weight: 58 kg

DRUGS (11)
  1. TAXOL [Suspect]
     Indication: BREAST CANCER
  2. CYTOXAN [Suspect]
     Indication: BREAST CANCER
     Route: 042
     Dates: start: 20090507, end: 20090507
  3. SUTENT [Suspect]
     Indication: BREAST CANCER
     Dosage: CAPSULE,HARD.
  4. ADRIAMYCIN RDF [Suspect]
     Indication: BREAST CANCER
     Dosage: SOLUTION FOR INJECTION
     Route: 042
     Dates: start: 20090507, end: 20090507
  5. HYDROCODONE BITARTRATE [Concomitant]
     Dates: start: 20081015
  6. PROTONIX [Concomitant]
     Dates: start: 20080615
  7. PHENERGAN [Concomitant]
     Dates: start: 20080915
  8. LISINOPRIL [Concomitant]
     Dates: start: 20090108
  9. PRILOSEC [Concomitant]
     Dates: start: 20090114
  10. ZESTORETIC [Concomitant]
     Dates: start: 20090206
  11. TRAZODONE HCL [Concomitant]
     Dates: start: 20090204

REACTIONS (3)
  - DEHYDRATION [None]
  - FEBRILE NEUTROPENIA [None]
  - TACHYCARDIA [None]
